FAERS Safety Report 8137545-7 (Version None)
Quarter: 2012Q1

REPORT INFORMATION
  Report Type: 
  Country: None (occurrence: None)
  Receive Date: 20120215
  Receipt Date: 20120207
  Transmission Date: 20120608
  Serious: Yes (Hospitalization)
  Sender: FDA-Public Use
  Company Number: US-US-EMD SERONO, INC.-7015261

PATIENT
  Sex: Female
  Weight: 73 kg

DRUGS (6)
  1. CALCIUM CARBONATE [Concomitant]
     Dosage: 500/200
  2. GABAPENTIN [Concomitant]
  3. ACYCLOVIR [Concomitant]
  4. LEVOTHYROXINE SODIUM [Concomitant]
  5. REBIF [Suspect]
     Indication: MULTIPLE SCLEROSIS
     Dates: start: 20090701, end: 20091209
  6. TIZANIDINE HCL [Concomitant]

REACTIONS (2)
  - TACHYCARDIA [None]
  - ALLODYNIA [None]
